FAERS Safety Report 16326627 (Version 1)
Quarter: 2019Q2

REPORT INFORMATION
  Report Type: Spontaneous
  Country: FR (occurrence: FR)
  Receive Date: 20190517
  Receipt Date: 20190517
  Transmission Date: 20190711
  Serious: Yes (Hospitalization)
  Sender: FDA-Public Use
  Company Number: FR-PFIZER INC-2019201571

PATIENT
  Age: 37 Year
  Sex: Female
  Weight: 54 kg

DRUGS (3)
  1. MIOREL [THIOCOLCHICOSIDE] [Suspect]
     Active Substance: THIOCOLCHICOSIDE
     Indication: SCIATICA
     Dosage: UNK
     Route: 048
     Dates: start: 20190306, end: 20190312
  2. IZALGI [Suspect]
     Active Substance: ACETAMINOPHEN\OPIUM
     Indication: SCIATICA
     Dosage: UNK
     Route: 048
     Dates: start: 20190306, end: 20190312
  3. PIROXICAM. [Suspect]
     Active Substance: PIROXICAM
     Indication: SCIATICA
     Dosage: UNK
     Route: 048
     Dates: start: 20190306, end: 20190312

REACTIONS (2)
  - Face oedema [Recovering/Resolving]
  - Rash maculo-papular [Recovering/Resolving]

NARRATIVE: CASE EVENT DATE: 20190308
